FAERS Safety Report 16174240 (Version 1)
Quarter: 2019Q2

REPORT INFORMATION
  Report Type: Spontaneous
  Country: US (occurrence: US)
  Receive Date: 20190409
  Receipt Date: 20190409
  Transmission Date: 20190711
  Serious: No
  Sender: FDA-Public Use
  Company Number: US-TEVA-2019-US-1025236

PATIENT

DRUGS (1)
  1. LIDOCAINE PATCH ACTAVIS [Suspect]
     Active Substance: LIDOCAINE
     Route: 065

REACTIONS (4)
  - Product adhesion issue [Unknown]
  - Product substitution issue [Unknown]
  - Application site rash [Unknown]
  - Product physical issue [Unknown]
